FAERS Safety Report 4399570-1 (Version None)
Quarter: 2004Q3

REPORT INFORMATION
  Report Type: 
  Country: None (occurrence: None)
  Receive Date: 20040716
  Receipt Date: 20040623
  Transmission Date: 20050211
  Serious: Yes (Other)
  Sender: FDA-Public Use
  Company Number: DE-GLAXOSMITHKLINE-D0044044A

PATIENT
  Age: 38 Year
  Sex: Male
  Weight: 77 kg

DRUGS (3)
  1. LAMICTAL [Suspect]
     Indication: EPILEPSY
     Dosage: 50MG UNKNOWN
     Route: 048
     Dates: start: 20040213, end: 20040216
  2. PHENAEMAL [Concomitant]
     Dosage: .5TAB UNKNOWN
     Route: 048
  3. OMEP [Concomitant]
     Indication: ILL-DEFINED DISORDER
     Dosage: 1TAB UNKNOWN
     Route: 048

REACTIONS (1)
  - CYANOSIS [None]
